FAERS Safety Report 7866313 (Version 3)
Quarter: 2012Q4

REPORT INFORMATION
  Report Type: Report from Study
  Country: JP (occurrence: JP)
  Receive Date: 20110322
  Receipt Date: 20120911
  Transmission Date: 20130627
  Serious: Yes (Hospitalization)
  Sender: FDA-Public Use
  Company Number: JP-PFIZER INC-2011060148

PATIENT
  Age: 69 Year
  Sex: Male
  Weight: 70 kg

DRUGS (14)
  1. IRINOTECAN [Suspect]
     Indication: COLORECTAL CANCER
     Dosage: 176 mg, 1x/day
     Route: 041
     Dates: start: 20110105, end: 20110105
  2. CAMPTO [Suspect]
     Dosage: 176 mg, 1x/day
     Route: 041
     Dates: start: 20110119, end: 20110119
  3. CAMPTO [Suspect]
     Dosage: 176 mg, 1x/day
     Route: 041
     Dates: start: 20110302, end: 20110302
  4. CAMPTO [Suspect]
     Dosage: 176 mg, 1x/day
     Route: 041
     Dates: start: 20110316, end: 20110316
  5. CAMPTO [Suspect]
     Dosage: 176 mg, 1x/day
     Route: 041
     Dates: start: 20110406, end: 20110406
  6. CAMPTO [Suspect]
     Dosage: 176 mg, 1x/day
     Route: 041
     Dates: start: 20110420, end: 20110420
  7. CAMPTO [Suspect]
     Dosage: 176 mg, 1x/day
     Route: 041
     Dates: start: 20110504, end: 20110504
  8. CAMPTO [Suspect]
     Dosage: 176 mg, 1x/day
     Route: 041
     Dates: start: 20110525, end: 20110525
  9. CAMPTO [Suspect]
     Dosage: 176 mg, 1x/day
     Route: 041
     Dates: start: 20110608, end: 20110608
  10. CAMPTO [Suspect]
     Dosage: 176 mg, 1x/day
     Route: 041
     Dates: start: 20110629, end: 20110629
  11. LEVOFOLINATE CALCIUM [Concomitant]
     Indication: COLORECTAL CANCER
     Dosage: 352 mg (200 mg/m2), cyclic
     Route: 041
     Dates: start: 20110105, end: 20110629
  12. 5-FU [Concomitant]
     Indication: COLORECTAL CANCER
     Dosage: 704 mg (400 mg/m2), cyclic
     Route: 040
     Dates: start: 20110105, end: 20110629
  13. 5-FU [Concomitant]
     Dosage: 4224 mg (2400 mg/m2), d1-2, cyclic
     Route: 041
     Dates: start: 20110105, end: 20110629
  14. ERBITUX [Concomitant]
     Indication: COLORECTAL CANCER
     Dosage: 440 mg (250 mg/m2), cyclic
     Route: 041
     Dates: start: 20110105, end: 20110720

REACTIONS (9)
  - Pneumonia [Recovered/Resolved]
  - Blood creatinine increased [Unknown]
  - Leukopenia [Unknown]
  - Neutropenia [Unknown]
  - Thrombocytopenia [Unknown]
  - Haemoglobin decreased [Unknown]
  - Blood bilirubin increased [Unknown]
  - Pyrexia [Unknown]
  - Diarrhoea [Unknown]
